FAERS Safety Report 24919192 (Version 1)
Quarter: 2025Q1

REPORT INFORMATION
  Report Type: Spontaneous
  Country: BB (occurrence: BB)
  Receive Date: 20250204
  Receipt Date: 20250204
  Transmission Date: 20250409
  Serious: Yes (Hospitalization)
  Sender: JOHNSON AND JOHNSON
  Company Number: BB-JNJFOC-20250182606

PATIENT

DRUGS (1)
  1. DARZALEX [Suspect]
     Active Substance: DARATUMUMAB
     Indication: Product used for unknown indication

REACTIONS (1)
  - Disease complication [Unknown]

NARRATIVE: CASE EVENT DATE: 20241201
